FAERS Safety Report 4501143-4 (Version None)
Quarter: 2004Q4

REPORT INFORMATION
  Report Type: 
  Country: None (occurrence: None)
  Receive Date: 20041110
  Receipt Date: 20041102
  Transmission Date: 20050328
  Serious: Yes (Other)
  Sender: FDA-Public Use
  Company Number: 2004078569

PATIENT
  Sex: Male

DRUGS (3)
  1. NORVASC [Suspect]
     Indication: ILL-DEFINED DISORDER
  2. ZYRTEC [Suspect]
     Indication: ILL-DEFINED DISORDER
  3. CARDURA [Suspect]
     Indication: ILL-DEFINED DISORDER

REACTIONS (2)
  - CARCINOMA [None]
  - TREATMENT NONCOMPLIANCE [None]
